FAERS Safety Report 5465900-2 (Version None)
Quarter: 2007Q3

REPORT INFORMATION
  Report Type: 
  Country: None (occurrence: None)
  Receive Date: 20070924
  Receipt Date: 20070914
  Transmission Date: 20080115
  Serious: Yes (Other)
  Sender: FDA-Public Use
  Company Number: IN-SANOFI-SYNTHELABO-F01200701149

PATIENT
  Sex: Male

DRUGS (5)
  1. CAPECITABINE [Suspect]
     Indication: COLORECTAL CANCER
     Route: 065
     Dates: start: 20070803
  2. TRAMADOL HCL [Suspect]
     Indication: TOOTH IMPACTED
     Route: 048
     Dates: start: 20070818, end: 20070822
  3. PAZOPANIB [Suspect]
     Indication: COLORECTAL CANCER
     Route: 065
     Dates: start: 20070803, end: 20070803
  4. OXALIPLATIN [Suspect]
     Indication: COLORECTAL CANCER
     Route: 042
     Dates: start: 20070803, end: 20070803
  5. AMOXICILLIN TRIHYDRATE [Concomitant]
     Dosage: UNK
     Route: 065
     Dates: start: 20070818, end: 20070822

REACTIONS (1)
  - ELECTROCARDIOGRAM ST-T SEGMENT ABNORMAL [None]
